FAERS Safety Report 25522577 (Version 1)
Quarter: 2025Q3

REPORT INFORMATION
  Report Type: Spontaneous
  Country: AU (occurrence: AU)
  Receive Date: 20250707
  Receipt Date: 20250707
  Transmission Date: 20251020
  Serious: Yes (Hospitalization)
  Sender: COLLEGIUM PHARMACEUTICAL
  Company Number: None

PATIENT
  Age: 68 Year
  Sex: Female

DRUGS (10)
  1. NUCYNTA [Suspect]
     Active Substance: TAPENTADOL HYDROCHLORIDE
     Indication: Procedural pain
     Route: 048
     Dates: start: 20250423, end: 20250424
  2. CADIVAST [Concomitant]
     Indication: Hypertension
     Route: 048
  3. CADIVAST [Concomitant]
     Indication: Hypercholesterolaemia
  4. CEFAZOLIN AFT [Concomitant]
     Indication: Antibiotic prophylaxis
     Route: 042
     Dates: start: 20250423, end: 20250424
  5. DYDROGESTERONE\ESTRADIOL [Concomitant]
     Active Substance: DYDROGESTERONE\ESTRADIOL
     Indication: Hormone replacement therapy
     Route: 048
  6. DAPAGLIFLOZIN [Concomitant]
     Active Substance: DAPAGLIFLOZIN
     Indication: Diabetes mellitus
     Route: 048
  7. JANUMET XR [Concomitant]
     Active Substance: METFORMIN HYDROCHLORIDE\SITAGLIPTIN PHOSPHATE
     Indication: Diabetes mellitus
     Route: 048
  8. MAYNE PHARMA ASPIRIN [Concomitant]
     Indication: Prophylaxis
     Route: 048
     Dates: start: 20250423
  9. PANADOL [Concomitant]
     Active Substance: ACETAMINOPHEN
     Indication: Analgesic therapy
     Route: 048
     Dates: start: 20250423
  10. NALOXONE HYDROCHLORIDE\OXYCODONE HYDROCHLORIDE [Concomitant]
     Active Substance: NALOXONE HYDROCHLORIDE\OXYCODONE HYDROCHLORIDE
     Indication: Analgesic therapy
     Route: 048
     Dates: start: 20250423

REACTIONS (1)
  - Incoherent [Recovered/Resolved]

NARRATIVE: CASE EVENT DATE: 20250424
